FAERS Safety Report 24120930 (Version 1)
Quarter: 2024Q3

REPORT INFORMATION
  Report Type: Spontaneous
  Country: FR (occurrence: FR)
  Receive Date: 20240722
  Receipt Date: 20240722
  Transmission Date: 20241017
  Serious: Yes (Death)
  Sender: RECKITT BENCKISER
  Company Number: None

PATIENT

DRUGS (2)
  1. SUBUTEX [Suspect]
     Active Substance: BUPRENORPHINE HYDROCHLORIDE
     Indication: Product used for unknown indication
     Dosage: 16 MILLIGRAM, QD
     Route: 045
     Dates: start: 2017
  2. ALCOHOL [Suspect]
     Active Substance: ALCOHOL
     Indication: Product used for unknown indication
     Dosage: 32 UNIT, QD
     Route: 048
     Dates: start: 1987

REACTIONS (4)
  - Malnutrition [Fatal]
  - Dyspnoea [Fatal]
  - Drug abuse [Fatal]
  - Intentional product use issue [Unknown]

NARRATIVE: CASE EVENT DATE: 19870101
